FAERS Safety Report 7629752-4 (Version None)
Quarter: 2011Q3

REPORT INFORMATION
  Report Type: 
  Country: None (occurrence: None)
  Receive Date: 20110722
  Receipt Date: 20110720
  Transmission Date: 20111222
  Serious: Yes (Other)
  Sender: FDA-Public Use
  Company Number: US-PFIZER INC-2011164942

PATIENT
  Sex: Male
  Weight: 48.98 kg

DRUGS (1)
  1. VIAGRA [Suspect]
     Dosage: UNK
     Dates: start: 20110720

REACTIONS (2)
  - ACCIDENTAL EXPOSURE [None]
  - ERECTION INCREASED [None]
